FAERS Safety Report 10296570 (Version 1)
Quarter: 2014Q3

REPORT INFORMATION
  Report Type: Spontaneous
  Country: JP (occurrence: JP)
  Receive Date: 20140710
  Receipt Date: 20140710
  Transmission Date: 20150326
  Serious: No
  Sender: FDA-Public Use
  Company Number: PHHY2012JP131945

PATIENT
  Age: 40 Year
  Sex: Female

DRUGS (5)
  1. GLIVEC [Suspect]
     Active Substance: IMATINIB MESYLATE
     Dosage: UNK
  2. DASATINIB [Suspect]
     Active Substance: DASATINIB
     Dosage: UNK
  3. GLIVEC [Suspect]
     Active Substance: IMATINIB MESYLATE
     Dosage: UNK
     Dates: start: 201201
  4. TASIGNA [Suspect]
     Active Substance: NILOTINIB
  5. DASATINIB [Suspect]
     Active Substance: DASATINIB
     Dosage: UNK

REACTIONS (3)
  - Necrosis [Unknown]
  - Diarrhoea [Unknown]
  - Rash [Unknown]
